FAERS Safety Report 8602533-0 (Version None)
Quarter: 2012Q3

REPORT INFORMATION
  Report Type: 
  Country: None (occurrence: None)
  Receive Date: 20120817
  Receipt Date: 20120806
  Transmission Date: 20120928
  Serious: Yes (Other)
  Sender: FDA-Public Use
  Company Number: PHHO2012KR010493

PATIENT
  Sex: Female
  Weight: 48.2 kg

DRUGS (11)
  1. SYNTHROID [Concomitant]
     Indication: HYPOTHYROIDISM
     Dosage: 100 MG, QD
     Route: 048
     Dates: start: 20110101
  2. NORVASC [Concomitant]
     Indication: HYPERTENSION
     Dosage: 10 MG, QD
     Route: 048
     Dates: start: 20120708
  3. UNASYN [Concomitant]
     Indication: PROPHYLAXIS
     Dosage: 750 MG, TID
     Route: 042
     Dates: start: 20120709
  4. NO TREATMENT RECEIVED [Suspect]
     Indication: RENAL TRANSPLANT
     Dosage: NO TREATMENT RECEIVED
  5. METHYLPREDNISOLONE [Concomitant]
     Indication: RENAL TRANSPLANT
     Dosage: 250 MG, QD
     Route: 042
     Dates: start: 20120709
  6. NEORAL [Suspect]
     Indication: RENAL TRANSPLANT
     Dosage: 162.5 MG, BID
     Route: 048
     Dates: start: 20120707
  7. MYFORTIC [Suspect]
     Indication: RENAL TRANSPLANT
     Dosage: 540 MG, BID
     Route: 048
     Dates: start: 20120710
  8. HUMULIN R [Concomitant]
     Indication: DIABETES MELLITUS
     Dosage: 100 IU, QD
     Route: 058
     Dates: start: 20120709
  9. MUCOPECT [Concomitant]
     Indication: PROPHYLAXIS
     Dosage: 45 MG, TID
     Route: 042
     Dates: start: 20120709
  10. SUCRALFATE [Concomitant]
     Indication: PROPHYLAXIS
     Dosage: 60 MG, QD
     Route: 048
     Dates: start: 20120709
  11. RANITIDINE HYDROCHLORIDE [Concomitant]
     Indication: PROPHYLAXIS
     Dosage: 100 MG, BID
     Route: 042
     Dates: start: 20120709

REACTIONS (1)
  - CONVULSION [None]
